FAERS Safety Report 10420292 (Version 1)
Quarter: 2014Q3

REPORT INFORMATION
  Report Type: Spontaneous
  Country: US (occurrence: None)
  Receive Date: 20140701
  Receipt Date: 20140701
  Transmission Date: 20150326
  Serious: No
  Sender: FDA-Public Use
  Company Number: 1000067253

PATIENT
  Age: 83 Year
  Sex: Female

DRUGS (6)
  1. INDAPAMIDE. [Concomitant]
     Active Substance: INDAPAMIDE
  2. BABY ASPIRIN (ACETYLSALICYLIC ACID) (81 MILLIGRAM) [Concomitant]
  3. LINZESS [Suspect]
     Active Substance: LINACLOTIDE
     Indication: CONSTIPATION
     Route: 048
     Dates: start: 20140504
  4. PRILOSEC (OMEPRAZOLE) [Concomitant]
     Active Substance: OMEPRAZOLE MAGNESIUM
  5. SIMVASTATIN. [Concomitant]
     Active Substance: SIMVASTATIN
  6. HYDROXYUREA (HYDROXYCARBAMIDE) [Concomitant]
     Active Substance: HYDROXYUREA

REACTIONS (1)
  - Abdominal pain upper [None]

NARRATIVE: CASE EVENT DATE: 20140509
